FAERS Safety Report 9511501 (Version 1)
Quarter: 2013Q3

REPORT INFORMATION
  Report Type: Spontaneous
  Country: BR (occurrence: BR)
  Receive Date: 20130910
  Receipt Date: 20130910
  Transmission Date: 20140515
  Serious: Yes (Hospitalization)
  Sender: FDA-Public Use
  Company Number: BR-JNJFOC-20130901111

PATIENT
  Sex: Male
  Weight: 96 kg

DRUGS (3)
  1. REMICADE [Suspect]
     Indication: COLITIS
     Route: 042
     Dates: start: 2011
  2. AZATHIOPRINE [Concomitant]
     Route: 065
  3. FORASEQ [Concomitant]
     Indication: ASTHMA
     Route: 065

REACTIONS (4)
  - Colitis ulcerative [Recovered/Resolved]
  - Crohn^s disease [Recovered/Resolved]
  - Weight increased [Unknown]
  - Psoriasis [Unknown]
